FAERS Safety Report 5868200-1 (Version None)
Quarter: 2008Q3

REPORT INFORMATION
  Report Type: 
  Country: None (occurrence: None)
  Receive Date: 20080902
  Receipt Date: 20080821
  Transmission Date: 20090109
  Serious: No
  Sender: FDA-Public Use
  Company Number: FR-PFIZER INC-2008066075

PATIENT
  Sex: Female
  Weight: 44 kg

DRUGS (1)
  1. TRIFLUCAN [Suspect]
     Route: 048
     Dates: start: 20080804, end: 20080805

REACTIONS (1)
  - MEDICATION ERROR [None]
